FAERS Safety Report 14710668 (Version 1)
Quarter: 2018Q2

REPORT INFORMATION
  Report Type: Spontaneous
  Country: US (occurrence: US)
  Receive Date: 20180403
  Receipt Date: 20180403
  Transmission Date: 20180711
  Serious: No
  Sender: FDA-Public Use
  Company Number: US-ROCHE-1974448

PATIENT
  Sex: Male

DRUGS (2)
  1. ERIVEDGE [Suspect]
     Active Substance: VISMODEGIB
     Indication: BASAL CELL CARCINOMA
     Route: 065
  2. ERIVEDGE [Suspect]
     Active Substance: VISMODEGIB
     Indication: SQUAMOUS CELL CARCINOMA OF SKIN

REACTIONS (1)
  - Muscle spasms [Unknown]
